FAERS Safety Report 23292570 (Version 3)
Quarter: 2023Q4

REPORT INFORMATION
  Report Type: Report from Study
  Country: DE (occurrence: DE)
  Receive Date: 20231213
  Receipt Date: 20231229
  Transmission Date: 20240109
  Serious: Yes (Hospitalization, Other)
  Sender: FDA-Public Use
  Company Number: DE-PFM-2023-06980

PATIENT
  Age: 65 Year
  Sex: Female
  Weight: 63 kg

DRUGS (34)
  1. ENCORAFENIB [Suspect]
     Active Substance: ENCORAFENIB
     Indication: Malignant melanoma
     Dosage: 450 MG, DAILY
     Route: 048
     Dates: start: 20230720, end: 20230926
  2. ENCORAFENIB [Suspect]
     Active Substance: ENCORAFENIB
     Dosage: 450 MG, DAILY
     Route: 048
     Dates: start: 20231006
  3. ENCORAFENIB [Suspect]
     Active Substance: ENCORAFENIB
     Dosage: 300 MG, DAILY
     Route: 048
     Dates: start: 20231124, end: 20231127
  4. ENCORAFENIB [Suspect]
     Active Substance: ENCORAFENIB
     Dosage: 450 MG, DAILY
     Route: 048
     Dates: start: 20231214
  5. BINIMETINIB [Suspect]
     Active Substance: BINIMETINIB
     Indication: Malignant melanoma
     Dosage: 45 MG, BID (2/DAY)
     Route: 048
     Dates: start: 20230720, end: 20230926
  6. BINIMETINIB [Suspect]
     Active Substance: BINIMETINIB
     Dosage: 45 MG, BID (2/DAY)
     Route: 048
     Dates: start: 20231006
  7. BINIMETINIB [Suspect]
     Active Substance: BINIMETINIB
     Dosage: UNK
     Route: 048
     Dates: start: 20231124
  8. BINIMETINIB [Suspect]
     Active Substance: BINIMETINIB
     Dosage: 45 MG TWICE DAILY
     Route: 048
     Dates: start: 20231214
  9. HYDROMORPHONE [Concomitant]
     Active Substance: HYDROMORPHONE
     Indication: Malignant melanoma
     Dosage: UNK
     Route: 065
     Dates: start: 20230715, end: 20230809
  10. SIMETICON [Concomitant]
     Indication: Abdominal distension
     Dosage: UNK
     Route: 065
     Dates: start: 20230721, end: 202307
  11. PANTOPRAZOLE SODIUM [Concomitant]
     Active Substance: PANTOPRAZOLE SODIUM
     Indication: Prophylaxis
     Dosage: UNK
     Route: 065
     Dates: start: 20230727, end: 20230812
  12. VALSARTAN [Concomitant]
     Active Substance: VALSARTAN
     Dosage: UNK
     Route: 065
     Dates: start: 20230712
  13. BISOPROLOL [Concomitant]
     Active Substance: BISOPROLOL\BISOPROLOL FUMARATE
     Dosage: UNK
     Route: 065
  14. PREGABALIN [Concomitant]
     Active Substance: PREGABALIN
     Dosage: UNK
     Route: 065
     Dates: start: 20230720, end: 20230808
  15. MOXONIDINE [Concomitant]
     Active Substance: MOXONIDINE
     Dosage: UNK
     Route: 065
     Dates: start: 20230712, end: 20230811
  16. MIRTAZAPINE [Concomitant]
     Active Substance: MIRTAZAPINE
     Dosage: UNK
     Route: 065
     Dates: start: 20230712, end: 20230811
  17. ENOXAPARIN [Concomitant]
     Active Substance: ENOXAPARIN
     Indication: Prophylaxis
     Dosage: UNK
     Route: 065
     Dates: start: 20230714, end: 20230811
  18. ENOXAPARIN [Concomitant]
     Active Substance: ENOXAPARIN
     Dosage: UNK
     Route: 065
     Dates: start: 20231129, end: 20231205
  19. IMMUNOGLOBULINS [Concomitant]
     Dosage: UNK
     Route: 065
     Dates: start: 20230721, end: 20230725
  20. INFLIXIMAB [Concomitant]
     Active Substance: INFLIXIMAB
     Indication: Colitis
     Dosage: UNK
     Route: 065
     Dates: start: 20230808, end: 20230808
  21. LOPERAMIDE [Concomitant]
     Active Substance: LOPERAMIDE
     Indication: Diarrhoea
     Dosage: UNK
     Route: 065
     Dates: start: 20230925
  22. BUDESONIDE [Concomitant]
     Active Substance: BUDESONIDE
     Indication: Hepatitis
     Dosage: UNK
     Route: 065
     Dates: start: 20231002, end: 202310
  23. MINOXICUTAN FRAUEN [Concomitant]
     Indication: Alopecia
     Dosage: UNK,SPRAY
     Route: 065
     Dates: start: 20231006, end: 202310
  24. URSODIOL [Concomitant]
     Active Substance: URSODIOL
     Indication: Hepatitis
     Dosage: UNK
     Route: 065
     Dates: start: 20231002, end: 202310
  25. HYDROCORTISONE [Concomitant]
     Active Substance: HYDROCORTISONE
     Indication: Hepatitis
     Dosage: UNK
     Route: 065
     Dates: start: 20231025, end: 20231128
  26. PREDNISOLONE [Concomitant]
     Active Substance: PREDNISOLONE
     Indication: Hepatitis
     Dosage: UNK
     Route: 065
     Dates: start: 20230801, end: 20230918
  27. PREDNISOLONE [Concomitant]
     Active Substance: PREDNISOLONE
     Dosage: UNK
     Route: 065
     Dates: start: 20231002, end: 20231024
  28. POTASSIUM CHLORIDE [Concomitant]
     Active Substance: POTASSIUM CHLORIDE
     Dosage: UNK
     Route: 065
     Dates: start: 20230719, end: 20230812
  29. CHOLECALCIFEROL [Concomitant]
     Active Substance: CHOLECALCIFEROL
     Indication: Prophylaxis
     Dosage: UNK
     Route: 065
     Dates: start: 20230721
  30. AMLODIPIN [AMLODIPINE MESILATE] [Concomitant]
     Dosage: UNK
     Route: 065
     Dates: start: 20230712
  31. SODIUM PICOSULFATE [Concomitant]
     Active Substance: SODIUM PICOSULFATE
     Dosage: UNK
     Route: 065
     Dates: start: 20230718, end: 20230720
  32. METAMIZOL [Concomitant]
     Active Substance: METAMIZOLE SODIUM
     Indication: Malignant melanoma
     Dosage: UNK
     Route: 065
     Dates: start: 202306, end: 20230812
  33. POLYETHYLENE GLYCOLS [Concomitant]
     Active Substance: POLYETHYLENE GLYCOLS
     Dosage: UNK
     Route: 065
     Dates: start: 20230718, end: 20230725
  34. METHYLPREDNISOLONE SODIUM SUCCINATE [Concomitant]
     Active Substance: METHYLPREDNISOLONE SODIUM SUCCINATE
     Dosage: UNK
     Route: 065
     Dates: start: 20230720, end: 20230725

REACTIONS (5)
  - Hepatitis [Recovered/Resolved]
  - Alanine aminotransferase increased [Not Recovered/Not Resolved]
  - Aspartate aminotransferase increased [Not Recovered/Not Resolved]
  - Pruritus [Unknown]
  - Nausea [Unknown]

NARRATIVE: CASE EVENT DATE: 20231117
